FAERS Safety Report 8961520 (Version 4)
Quarter: 2013Q2

REPORT INFORMATION
  Report Type: Spontaneous
  Country: US (occurrence: US)
  Receive Date: 20121212
  Receipt Date: 20130426
  Transmission Date: 20140414
  Serious: No
  Sender: FDA-Public Use
  Company Number: US-VERTEX PHARMACEUTICALS INC.-2012-025946

PATIENT
  Age: 57 Year
  Sex: Female
  Weight: 102 kg

DRUGS (13)
  1. INCIVEK [Suspect]
     Indication: HEPATITIS C
     Dosage: 750 MG, TID
     Route: 048
     Dates: start: 20121127
  2. RIBAVIRIN [Suspect]
     Indication: HEPATITIS C
     Dosage: 600 MG, BID
     Dates: start: 20121127
  3. PEGASYS [Suspect]
     Indication: HEPATITIS C
     Dosage: 180 ?G, QW
     Route: 058
     Dates: start: 20110124
  4. HUMULIN [Concomitant]
     Dosage: 42 UNITS AM/PM
     Route: 058
  5. PROTONIX [Concomitant]
     Dosage: UNK, QD
  6. DEMEROL [Concomitant]
  7. TERAZOSIN [Concomitant]
     Dosage: 10 MG, QD
  8. CITALOPRAM HBR [Concomitant]
     Dosage: 40 MG, QD
  9. PROMETHAZINE [Concomitant]
     Dosage: 25 MG, PRN
  10. HYDROCHLOROTHIAZIDE [Concomitant]
     Dosage: 25 MG, QD
  11. LISINOPRIL [Concomitant]
     Dosage: 20 MG, QD
  12. DICYCLOMINE [Concomitant]
     Dosage: 10 MG, UNK
  13. ASPIRIN (E.C.) [Concomitant]
     Dosage: 81 MG, QD

REACTIONS (5)
  - Insomnia [Not Recovered/Not Resolved]
  - Abdominal discomfort [Unknown]
  - Diarrhoea [Unknown]
  - Drug ineffective [Unknown]
  - Proctalgia [Unknown]
